FAERS Safety Report 20957178 (Version 1)
Quarter: 2022Q2

REPORT INFORMATION
  Report Type: Spontaneous
  Country: US (occurrence: US)
  Receive Date: 20220614
  Receipt Date: 20220614
  Transmission Date: 20220721
  Serious: No
  Sender: FDA-Public Use
  Company Number: US-PFM-2021-05002

PATIENT
  Age: 2 Year
  Sex: Male

DRUGS (2)
  1. HEMANGEOL [Suspect]
     Active Substance: PROPRANOLOL HYDROCHLORIDE
     Indication: Product used for unknown indication
     Dosage: 3.5 ML, BID (2/DAY)
     Route: 048
     Dates: start: 20201017
  2. HEMANGEOL [Suspect]
     Active Substance: PROPRANOLOL HYDROCHLORIDE
     Dosage: 2 ML, BID (2/DAY)
     Route: 048

REACTIONS (2)
  - Insomnia [Not Recovered/Not Resolved]
  - Nightmare [Not Recovered/Not Resolved]

NARRATIVE: CASE EVENT DATE: 20201117
